FAERS Safety Report 5862661-X (Version None)
Quarter: 2008Q3

REPORT INFORMATION
  Report Type: 
  Country: None (occurrence: None)
  Receive Date: 20080827
  Receipt Date: 20080827
  Transmission Date: 20090109
  Serious: Yes (Other)
  Sender: FDA-Public Use
  Company Number: None

PATIENT
  Sex: Male
  Weight: 90.7194 kg

DRUGS (4)
  1. EFFEXOR [Suspect]
     Indication: DEPRESSION
     Dosage: 225MG 1X PER DAY PO
     Route: 048
  2. BUSPIRONE 10MG PILLS BRISTOL-MYERS SQUIBB COMPANY [Suspect]
     Indication: ANXIETY
     Dosage: 10MG 2X PER DAY PO
     Route: 048
  3. MINOCYCLINE HCL [Concomitant]
  4. AMBIEN [Concomitant]

REACTIONS (1)
  - MIGRAINE [None]
